FAERS Safety Report 7715201-4 (Version None)
Quarter: 2011Q3

REPORT INFORMATION
  Report Type: 
  Country: None (occurrence: None)
  Receive Date: 20110829
  Receipt Date: 20110819
  Transmission Date: 20111222
  Serious: Yes (Hospitalization)
  Sender: FDA-Public Use
  Company Number: PHHY2011US30360

PATIENT
  Sex: Female
  Weight: 14 kg

DRUGS (5)
  1. SABRIL [Concomitant]
     Indication: CONVULSION
     Dosage: 325 MG, BID
     Route: 048
  2. AMIODARONE HCL [Concomitant]
     Dosage: UNK UKN, UNK
  3. KEPPRA [Concomitant]
     Indication: CONVULSION
     Dosage: 300 MG, BID
     Route: 048
     Dates: start: 20101230
  4. AFINITOR [Suspect]
     Indication: TUBEROUS SCLEROSIS
     Dosage: 2.5 MG, QD
     Route: 048
     Dates: start: 20110317
  5. FLECAINIDE ACETATE [Concomitant]
     Dosage: UNK UKN, UNK

REACTIONS (4)
  - COUGH [None]
  - CONVULSION [None]
  - PYREXIA [None]
  - NASOPHARYNGITIS [None]
